FAERS Safety Report 11999517 (Version 1)
Quarter: 2016Q1

REPORT INFORMATION
  Report Type: Spontaneous
  Country: AU (occurrence: AU)
  Receive Date: 20160204
  Receipt Date: 20160204
  Transmission Date: 20160526
  Serious: Yes (Death, Other)
  Sender: FDA-Public Use
  Company Number: AU-PFIZER INC-2015236062

PATIENT
  Age: 54 Year
  Sex: Male

DRUGS (4)
  1. TEGRETOL [Concomitant]
     Active Substance: CARBAMAZEPINE
     Indication: MOOD ALTERED
     Dosage: UNK
  2. MORPHINE HYDROCHLORIDE [Concomitant]
     Active Substance: MORPHINE HYDROCHLORIDE
     Dosage: UNK
  3. CHAMPIX [Suspect]
     Active Substance: VARENICLINE TARTRATE
     Indication: SMOKING CESSATION THERAPY
     Dosage: UNK
     Dates: start: 20110222
  4. CHAMPIX [Suspect]
     Active Substance: VARENICLINE TARTRATE
     Dosage: UNK
     Dates: start: 201108

REACTIONS (9)
  - Agitation [Unknown]
  - Disease recurrence [Unknown]
  - Mood swings [Unknown]
  - Abnormal behaviour [Unknown]
  - Malaise [Unknown]
  - Diarrhoea [Unknown]
  - Restlessness [Unknown]
  - Feeling abnormal [Unknown]
  - Completed suicide [Fatal]

NARRATIVE: CASE EVENT DATE: 2011
